FAERS Safety Report 8307370-2 (Version None)
Quarter: 2012Q2

REPORT INFORMATION
  Report Type: 
  Country: None (occurrence: None)
  Receive Date: 20120424
  Receipt Date: 20120423
  Transmission Date: 20120825
  Serious: Yes (Life-Threatening, Hospitalization, Other)
  Sender: FDA-Public Use
  Company Number: MX-BRISTOL-MYERS SQUIBB COMPANY-16481145

PATIENT
  Age: 67 Year
  Sex: Female
  Weight: 70 kg

DRUGS (7)
  1. TOPIRAMATE [Concomitant]
     Indication: MIGRAINE
     Dosage: TABLET
     Route: 048
  2. OMEPRAZOLE [Concomitant]
     Indication: DUODENAL ULCER
     Dosage: CAPSULE
     Route: 048
  3. IRBESARTAN AND HYDROCHLOROTHIAZIDE [Suspect]
     Indication: HYPERTENSION
     Dosage: 1DF:1 TABS
     Route: 048
     Dates: start: 20080101
  4. ASPIRIN [Concomitant]
     Dosage: TABLET
     Route: 048
     Dates: end: 20120101
  5. ZOLEDRONOC ACID [Concomitant]
     Indication: OSTEOPOROSIS
     Dosage: JAN-JAN10, JAN-JAN11, JAN-JAN12
     Route: 042
     Dates: start: 20100101, end: 20120101
  6. FORTEO [Concomitant]
     Indication: OSTEOPOROSIS
     Route: 058
     Dates: start: 20100101, end: 20110601
  7. AMITRIPTYLINE HCL [Concomitant]
     Indication: DEPRESSION
     Dosage: TABLET
     Route: 048

REACTIONS (6)
  - ANAEMIA [None]
  - SYNCOPE [None]
  - OSTEOPOROSIS [None]
  - HAEMATOCHEZIA [None]
  - VOMITING [None]
  - NAUSEA [None]
